FAERS Safety Report 25473134 (Version 2)
Quarter: 2025Q3

REPORT INFORMATION
  Report Type: Spontaneous
  Country: CN (occurrence: CN)
  Receive Date: 20250624
  Receipt Date: 20250813
  Transmission Date: 20251021
  Serious: Yes (Other)
  Sender: ALEXION PHARMACEUTICALS
  Company Number: CN-ASTRAZENECA-202505GLO003858CN

PATIENT
  Age: 48 Year
  Sex: Female

DRUGS (2)
  1. GEFITINIB [Suspect]
     Active Substance: GEFITINIB
     Indication: Lung adenocarcinoma
     Dosage: 250 MILLIGRAM, QD
     Route: 065
  2. OSIMERTINIB [Suspect]
     Active Substance: OSIMERTINIB
     Indication: Lung adenocarcinoma
     Dosage: 80 MILLIGRAM, QD
     Route: 065

REACTIONS (3)
  - Malignant neoplasm progression [Unknown]
  - Ureteral neoplasm [Unknown]
  - Acquired gene mutation [Unknown]
